FAERS Safety Report 8397859-2 (Version None)
Quarter: 2012Q2

REPORT INFORMATION
  Report Type: 
  Country: None (occurrence: None)
  Receive Date: 20120531
  Receipt Date: 20120525
  Transmission Date: 20120825
  Serious: Yes (Hospitalization, Other)
  Sender: FDA-Public Use
  Company Number: PHHY2012US045512

PATIENT

DRUGS (2)
  1. GLEEVEC [Suspect]
     Indication: SYSTEMIC SCLEROSIS
     Dosage: 400 MG, DAILY
     Route: 048
  2. GLEEVEC [Suspect]
     Dosage: 300 MG, DAILY
     Route: 048

REACTIONS (3)
  - FLUID OVERLOAD [None]
  - HAEMORRHOIDAL HAEMORRHAGE [None]
  - PLEURAL EFFUSION [None]
